FAERS Safety Report 8784554 (Version 1)
Quarter: 2012Q4

REPORT INFORMATION
  Report Type: Spontaneous
  Country: US (occurrence: None)
  Receive Date: 20120907
  Receipt Date: 20120907
  Transmission Date: 20130627
  Serious: Yes (Hospitalization)
  Sender: FDA-Public Use
  Company Number: None

PATIENT
  Age: 55 Year
  Sex: Female
  Weight: 76 kg

DRUGS (1)
  1. CRESTOR [Suspect]
     Indication: HYPERLIPIDEMIA
     Dosage: 20 mg once daily po
     Route: 048

REACTIONS (3)
  - Renal failure acute [None]
  - Hypothyroidism [None]
  - Rhabdomyolysis [None]
